FAERS Safety Report 6069282-7 (Version None)
Quarter: 2009Q1

REPORT INFORMATION
  Report Type: 
  Country: None (occurrence: None)
  Receive Date: 20090206
  Receipt Date: 20090126
  Transmission Date: 20090719
  Serious: Yes (Other)
  Sender: FDA-Public Use
  Company Number: US-PFIZER INC-2009161167

PATIENT
  Sex: Female
  Weight: 49.895 kg

DRUGS (2)
  1. XALATAN [Suspect]
     Indication: GLAUCOMA
     Dosage: UNK
     Dates: start: 20080101, end: 20080101
  2. MOTRIN [Concomitant]
     Dosage: UNK

REACTIONS (1)
  - GLAUCOMA SURGERY [None]
